FAERS Safety Report 16876127 (Version 3)
Quarter: 2019Q4

REPORT INFORMATION
  Report Type: Report from Study
  Country: JP (occurrence: JP)
  Receive Date: 20191002
  Receipt Date: 20191105
  Transmission Date: 20200122
  Serious: No
  Sender: FDA-Public Use
  Company Number: JP-SAKK-2019SA267788AA

PATIENT
  Age: 44 Year
  Sex: Female
  Weight: 57 kg

DRUGS (15)
  1. FLUOROURACIL. [Suspect]
     Active Substance: FLUOROURACIL
     Indication: RECTAL CANCER
     Dosage: 600 MG, 1X
     Route: 040
     Dates: start: 20180619, end: 20180619
  2. AFLIBERCEPT [Suspect]
     Active Substance: AFLIBERCEPT
     Dosage: 4 MG/KG, 1X
     Route: 041
     Dates: start: 20180522, end: 20180522
  3. IRINOTECAN [Suspect]
     Active Substance: IRINOTECAN
     Indication: RECTAL CANCER
     Dosage: 220 MG, 1X
     Route: 065
     Dates: start: 20180619, end: 20180619
  4. FLUOROURACIL. [Suspect]
     Active Substance: FLUOROURACIL
     Dosage: 3500 MG, 1X
     Route: 041
     Dates: start: 20180604, end: 20180604
  5. CALCIUM FOLINATE [Suspect]
     Active Substance: LEUCOVORIN CALCIUM
     Dosage: 300 MG, 1X
     Route: 065
     Dates: start: 20180604, end: 20180604
  6. IRINOTECAN [Suspect]
     Active Substance: IRINOTECAN
     Dosage: 220 MG, 1X
     Route: 065
     Dates: start: 20180522, end: 20180522
  7. FLUOROURACIL. [Suspect]
     Active Substance: FLUOROURACIL
     Dosage: 3500 MG, 1X
     Route: 041
     Dates: start: 20180619, end: 20180619
  8. AFLIBERCEPT [Suspect]
     Active Substance: AFLIBERCEPT
     Indication: RECTAL CANCER
     Dosage: 4 MG/KG, 1X
     Route: 041
     Dates: start: 20180619, end: 20180619
  9. AFLIBERCEPT [Suspect]
     Active Substance: AFLIBERCEPT
     Dosage: 4 MG/KG, 1X
     Route: 041
     Dates: start: 20180604, end: 20180604
  10. CALCIUM FOLINATE [Suspect]
     Active Substance: LEUCOVORIN CALCIUM
     Indication: RECTAL CANCER
     Dosage: 300 MG, 1X
     Route: 065
     Dates: start: 20180619, end: 20180619
  11. FLUOROURACIL. [Suspect]
     Active Substance: FLUOROURACIL
     Dosage: 3500 MG, 1X
     Route: 041
     Dates: start: 20180522, end: 20180522
  12. IRINOTECAN [Suspect]
     Active Substance: IRINOTECAN
     Dosage: 220 MG, 1X
     Route: 065
     Dates: start: 20180604, end: 20180604
  13. FLUOROURACIL. [Suspect]
     Active Substance: FLUOROURACIL
     Dosage: 600 MG, 1X
     Route: 040
     Dates: start: 20180522, end: 20180522
  14. FLUOROURACIL. [Suspect]
     Active Substance: FLUOROURACIL
     Dosage: 600 MG, 1X
     Route: 040
     Dates: start: 20180604, end: 20180604
  15. CALCIUM FOLINATE [Suspect]
     Active Substance: LEUCOVORIN CALCIUM
     Dosage: 300 MG, 1X
     Route: 065
     Dates: start: 20180522, end: 20180522

REACTIONS (2)
  - White blood cell count decreased [Recovered/Resolved]
  - Hypertension [Recovered/Resolved]

NARRATIVE: CASE EVENT DATE: 20180619
